FAERS Safety Report 6199261-0 (Version None)
Quarter: 2009Q2

REPORT INFORMATION
  Report Type: 
  Country: None (occurrence: None)
  Receive Date: 20090519
  Receipt Date: 20090507
  Transmission Date: 20091009
  Serious: Yes (Hospitalization)
  Sender: FDA-Public Use
  Company Number: 2009004700

PATIENT
  Age: 61 Year
  Sex: Female
  Weight: 154.223 kg

DRUGS (8)
  1. AMRIX [Suspect]
     Indication: PARAESTHESIA
     Dosage: (1 IN 1 D), ORAL, (1 IN 1 D), ORAL
     Route: 048
     Dates: start: 20090421
  2. AMRIX [Suspect]
     Indication: PARAESTHESIA
     Dosage: (1 IN 1 D), ORAL, (1 IN 1 D), ORAL
     Route: 048
     Dates: start: 20090504
  3. ATENOLOL [Concomitant]
  4. NAPROSYN [Concomitant]
  5. DYAZIDE [Concomitant]
  6. CALCIUM CITRATE WITH VITAMIN D + K [Concomitant]
  7. IBUPROFEN [Concomitant]
  8. VICODIN [Concomitant]

REACTIONS (3)
  - CHRONIC OBSTRUCTIVE PULMONARY DISEASE [None]
  - HYPERTENSION [None]
  - TACHYARRHYTHMIA [None]
